FAERS Safety Report 12843364 (Version 1)
Quarter: 2016Q4

REPORT INFORMATION
  Report Type: Spontaneous
  Country: US (occurrence: US)
  Receive Date: 20161013
  Receipt Date: 20161013
  Transmission Date: 20170207
  Serious: No
  Sender: FDA-Public Use
  Company Number: US-ACTAVIS-2016-10072

PATIENT
  Age: 93 Year
  Sex: Female

DRUGS (3)
  1. GABAPENTIN (AELLC) [Suspect]
     Active Substance: GABAPENTIN
     Indication: PAIN
     Dosage: 400 MG, BID
     Route: 048
  2. GABAPENTIN (AELLC) [Suspect]
     Active Substance: GABAPENTIN
     Indication: POST LAMINECTOMY SYNDROME
  3. GABAPENTIN (AELLC) [Suspect]
     Active Substance: GABAPENTIN
     Indication: NEURITIS

REACTIONS (1)
  - Drug ineffective [Not Recovered/Not Resolved]
